FAERS Safety Report 21500496 (Version 1)
Quarter: 2022Q4

REPORT INFORMATION
  Report Type: Spontaneous
  Country: AU (occurrence: AU)
  Receive Date: 20221025
  Receipt Date: 20221025
  Transmission Date: 20230113
  Serious: Yes (Other)
  Sender: FDA-Public Use
  Company Number: None

PATIENT
  Age: 53 Year
  Sex: Male

DRUGS (2)
  1. DALFAMPRIDINE [Suspect]
     Active Substance: DALFAMPRIDINE
     Indication: Product used for unknown indication
     Route: 050
  2. OCRELIZUMAB [Concomitant]
     Active Substance: OCRELIZUMAB
     Indication: Product used for unknown indication
     Route: 050

REACTIONS (2)
  - Generalised tonic-clonic seizure [Unknown]
  - Toxicity to various agents [Unknown]
